FAERS Safety Report 13553968 (Version 2)
Quarter: 2017Q2

REPORT INFORMATION
  Report Type: Spontaneous
  Country: FR (occurrence: FR)
  Receive Date: 20170517
  Receipt Date: 20170607
  Transmission Date: 20170830
  Serious: Yes (Life-Threatening, Hospitalization, Other)
  Sender: FDA-Public Use
  Company Number: FR-GLAXOSMITHKLINE-FR2017GSK067064

PATIENT
  Age: 65 Year
  Sex: Female
  Weight: 65 kg

DRUGS (4)
  1. ATOVAQUONE + PROGUANIL BIOGARAN [Suspect]
     Active Substance: ATOVAQUONE\PROGUANIL HYDROCHLORIDE
     Indication: MALARIA PROPHYLAXIS
     Dosage: 1 UNK, 1D
     Route: 048
     Dates: start: 20170403, end: 20170406
  2. ATACAND [Concomitant]
     Active Substance: CANDESARTAN CILEXETIL
     Dosage: UNK
     Route: 048
     Dates: start: 2016
  3. NOVONORM [Concomitant]
     Active Substance: REPAGLINIDE
     Indication: DIABETES MELLITUS
     Dosage: UNK
     Route: 048
     Dates: start: 2014
  4. JANUMET [Concomitant]
     Active Substance: METFORMIN HYDROCHLORIDE\SITAGLIPTIN PHOSPHATE
     Indication: DIABETES MELLITUS
     Dosage: UNK
     Route: 048
     Dates: start: 2014

REACTIONS (9)
  - Fatigue [Unknown]
  - Eye haemorrhage [Recovering/Resolving]
  - Anaphylactic shock [Unknown]
  - Acute pulmonary oedema [Recovered/Resolved]
  - Respiratory disorder [Unknown]
  - Hypertension [Recovered/Resolved]
  - Dyspnoea [Recovered/Resolved]
  - Decreased appetite [Recovered/Resolved]
  - Vomiting [Recovered/Resolved]

NARRATIVE: CASE EVENT DATE: 20170404
